FAERS Safety Report 13334306 (Version 1)
Quarter: 2017Q1

REPORT INFORMATION
  Report Type: Spontaneous
  Country: IT (occurrence: IT)
  Receive Date: 20170314
  Receipt Date: 20170314
  Transmission Date: 20170428
  Serious: Yes (Other)
  Sender: FDA-Public Use
  Company Number: IT-PFIZER INC-2017107913

PATIENT
  Age: 65 Year
  Sex: Male

DRUGS (9)
  1. LIORESAL [Concomitant]
     Active Substance: BACLOFEN
     Dosage: 50 MG, UNK
     Route: 048
  2. LUVION /00252501/ [Concomitant]
     Active Substance: CANRENONE
     Route: 048
  3. LYRICA [Suspect]
     Active Substance: PREGABALIN
     Indication: NEURALGIA
     Dosage: 300 MG, DAILY
     Route: 048
     Dates: start: 20170306, end: 20170306
  4. CYMBALTA [Concomitant]
     Active Substance: DULOXETINE HYDROCHLORIDE
     Dosage: 60 MG, UNK
     Route: 048
  5. INDERAL [Concomitant]
     Active Substance: PROPRANOLOL HYDROCHLORIDE
     Route: 048
  6. RIVOTRIL [Concomitant]
     Active Substance: CLONAZEPAM
     Dosage: 5 GTT, UNK
     Route: 048
  7. LAEVOLAC [Concomitant]
     Active Substance: LACTULOSE
     Route: 048
  8. OXYCONTIN [Suspect]
     Active Substance: OXYCODONE HYDROCHLORIDE
     Indication: ANALGESIC THERAPY
     Dosage: 40 MG, DAILY
     Route: 048
     Dates: start: 20170306, end: 20170306
  9. LANSOX [Concomitant]
     Active Substance: LANSOPRAZOLE
     Route: 048

REACTIONS (2)
  - Confusional state [Unknown]
  - Anuria [Unknown]

NARRATIVE: CASE EVENT DATE: 20170306
